FAERS Safety Report 5273682-2 (Version None)
Quarter: 2007Q1

REPORT INFORMATION
  Report Type: 
  Country: None (occurrence: None)
  Receive Date: 20070323
  Receipt Date: 20070312
  Transmission Date: 20070707
  Serious: Yes (Other)
  Sender: FDA-Public Use
  Company Number: PHEH2007US02997

PATIENT

DRUGS (1)
  1. FEMARA [Suspect]

REACTIONS (1)
  - NEUROPATHY PERIPHERAL [None]
